FAERS Safety Report 6944439-9 (Version None)
Quarter: 2010Q3

REPORT INFORMATION
  Report Type: 
  Country: None (occurrence: None)
  Receive Date: 20100827
  Receipt Date: 20100816
  Transmission Date: 20110219
  Serious: Yes (Death, Hospitalization, Other)
  Sender: FDA-Public Use
  Company Number: US-PFIZER INC-2010072305

PATIENT
  Sex: Female

DRUGS (1)
  1. CHANTIX [Suspect]
     Indication: SMOKING CESSATION THERAPY
     Dosage: UNK
     Dates: start: 20080401

REACTIONS (8)
  - AGGRESSION [None]
  - AMNESIA [None]
  - BIPOLAR DISORDER [None]
  - COMPLETED SUICIDE [None]
  - CONFUSIONAL STATE [None]
  - DELUSION [None]
  - LOSS OF CONSCIOUSNESS [None]
  - POST-TRAUMATIC STRESS DISORDER [None]
